FAERS Safety Report 12705272 (Version 1)
Quarter: 2016Q3

REPORT INFORMATION
  Report Type: Spontaneous
  Country: US (occurrence: US)
  Receive Date: 20160831
  Receipt Date: 20160831
  Transmission Date: 20161109
  Serious: No
  Sender: FDA-Public Use
  Company Number: US-CELGENEUS-USA-2016086812

PATIENT
  Sex: Male
  Weight: 108.96 kg

DRUGS (1)
  1. OTEZLA [Suspect]
     Active Substance: APREMILAST
     Indication: PSORIASIS
     Dosage: 60 MILLIGRAM
     Route: 048
     Dates: end: 201607

REACTIONS (3)
  - Weight decreased [Recovered/Resolved]
  - Eating disorder [Recovered/Resolved]
  - Ageusia [Recovering/Resolving]
